FAERS Safety Report 4470774-2 (Version None)
Quarter: 2004Q4

REPORT INFORMATION
  Report Type: 
  Country: None (occurrence: None)
  Receive Date: 20041006
  Receipt Date: 20040929
  Transmission Date: 20050328
  Serious: Yes (Life-Threatening)
  Sender: FDA-Public Use
  Company Number: TCI2001A01785

PATIENT
  Age: 69 Year
  Sex: Male

DRUGS (4)
  1. ACTOS [Suspect]
     Indication: DIABETES MELLITUS NON-INSULIN-DEPENDENT
     Dosage: 30 MG (30 MG, 1 IN 1 D) PER ORAL
     Route: 048
     Dates: start: 20000530, end: 20010114
  2. GLIBENCLAMIDE [Concomitant]
  3. VITANEURIN(FURSULTIAMINE, PRRIDOXAL 5*PHOSPHATE, HYDROXCOBALA [Concomitant]
  4. ANTIBIOTIC PREPARATIONS [Concomitant]

REACTIONS (8)
  - ARTHRALGIA [None]
  - CARDIAC FAILURE ACUTE [None]
  - CARDIOMEGALY [None]
  - GENERALISED OEDEMA [None]
  - INFLUENZA LIKE ILLNESS [None]
  - NASOPHARYNGITIS [None]
  - TREATMENT NONCOMPLIANCE [None]
  - WEIGHT INCREASED [None]
